FAERS Safety Report 7928687-7 (Version None)
Quarter: 2011Q4

REPORT INFORMATION
  Report Type: 
  Country: None (occurrence: None)
  Receive Date: 20111118
  Receipt Date: 20111107
  Transmission Date: 20120403
  Serious: Yes (Death, Hospitalization)
  Sender: FDA-Public Use
  Company Number: IR-MYLANLABS-2011S1022990

PATIENT
  Age: 21 Year
  Sex: Female

DRUGS (1)
  1. METFORMIN HCL [Suspect]
     Indication: INTENTIONAL OVERDOSE
     Dosage: 100G
     Route: 048

REACTIONS (8)
  - VENTRICULAR ARRHYTHMIA [None]
  - NAUSEA [None]
  - METABOLIC ACIDOSIS [None]
  - VOMITING [None]
  - TOXICITY TO VARIOUS AGENTS [None]
  - HYPOGLYCAEMIA [None]
  - CONVULSION [None]
  - HYPOVOLAEMIC SHOCK [None]
